FAERS Safety Report 5341352-8 (Version None)
Quarter: 2007Q2

REPORT INFORMATION
  Report Type: 
  Country: None (occurrence: None)
  Receive Date: 20070530
  Receipt Date: 20070518
  Transmission Date: 20071010
  Serious: Yes (Hospitalization)
  Sender: FDA-Public Use
  Company Number: 2007PV031045

PATIENT
  Age: 60 Year
  Sex: Female

DRUGS (11)
  1. SYMLIN [Suspect]
     Indication: DIABETES MELLITUS INSULIN-DEPENDENT
     Dosage: SEE IMAGE; SC
     Route: 058
     Dates: start: 20061120, end: 20061201
  2. SYMLIN [Suspect]
     Indication: DIABETES MELLITUS INSULIN-DEPENDENT
     Dosage: SEE IMAGE; SC
     Route: 058
     Dates: end: 20070202
  3. SYMLIN [Suspect]
     Indication: DIABETES MELLITUS INSULIN-DEPENDENT
     Dosage: SEE IMAGE; SC
     Route: 058
     Dates: start: 20061201
  4. ATENOLOL [Concomitant]
  5. DYAZIDE [Concomitant]
  6. ENALAPRIL MALEATE [Concomitant]
  7. AVANDIA [Concomitant]
  8. VYTORIN [Concomitant]
  9. EFFEXOR [Concomitant]
  10. LANTUS [Concomitant]
  11. AMBIEN [Concomitant]

REACTIONS (6)
  - AMAUROSIS FUGAX [None]
  - DRUG PRESCRIBING ERROR [None]
  - INJECTION SITE BRUISING [None]
  - INJECTION SITE HAEMORRHAGE [None]
  - NAUSEA [None]
  - TRANSIENT ISCHAEMIC ATTACK [None]
